FAERS Safety Report 8459468-6 (Version None)
Quarter: 2012Q2

REPORT INFORMATION
  Report Type: 
  Country: None (occurrence: None)
  Receive Date: 20120622
  Receipt Date: 20120612
  Transmission Date: 20120825
  Serious: No
  Sender: FDA-Public Use
  Company Number: FR-JNJFOC-20120605961

PATIENT
  Age: 4 Decade
  Sex: Female

DRUGS (3)
  1. DURAGESIC-100 [Suspect]
     Indication: PAIN
     Route: 062
  2. LYRICA [Concomitant]
     Indication: PAIN
     Route: 065
  3. TETRAZEPAM [Concomitant]
     Indication: PAIN
     Route: 065

REACTIONS (2)
  - PRODUCT QUALITY ISSUE [None]
  - INAPPROPRIATE SCHEDULE OF DRUG ADMINISTRATION [None]
